FAERS Safety Report 7332614-3 (Version None)
Quarter: 2011Q1

REPORT INFORMATION
  Report Type: 
  Country: None (occurrence: None)
  Receive Date: 20110304
  Receipt Date: 20110228
  Transmission Date: 20110831
  Serious: Yes (Death, Other)
  Sender: FDA-Public Use
  Company Number: GR-PFIZER INC-2011042628

PATIENT
  Age: 61 Year
  Sex: Male

DRUGS (2)
  1. AMPICILLIN SODIUM AND SULBACTAM SODIUM [Suspect]
     Indication: MENINGITIS STREPTOCOCCAL
  2. CEFTRIAXONE [Suspect]
     Indication: MENINGITIS STREPTOCOCCAL
     Route: 042

REACTIONS (5)
  - HEPATIC FUNCTION ABNORMAL [None]
  - BRAIN OEDEMA [None]
  - RENAL IMPAIRMENT [None]
  - SEPTIC SHOCK [None]
  - CEREBRAL HAEMORRHAGE [None]
